FAERS Safety Report 13880306 (Version 1)
Quarter: 2017Q3

REPORT INFORMATION
  Report Type: Spontaneous
  Country: US (occurrence: US)
  Receive Date: 20170817
  Receipt Date: 20170817
  Transmission Date: 20171127
  Serious: Yes (Life-Threatening, Hospitalization)
  Sender: FDA-Public Use
  Company Number: None

PATIENT
  Age: 80 Year
  Sex: Male
  Weight: 72 kg

DRUGS (2)
  1. METOPROLOL. [Suspect]
     Active Substance: METOPROLOL
     Indication: ARRHYTHMIA
     Dosage: EVERY 12 HOURS ORAL
     Route: 048
     Dates: start: 20160817, end: 20170817
  2. METOPROLOL. [Suspect]
     Active Substance: METOPROLOL
     Indication: POST PROCEDURAL COMPLICATION
     Dosage: EVERY 12 HOURS ORAL
     Route: 048
     Dates: start: 20160817, end: 20170817

REACTIONS (2)
  - Bronchospasm [None]
  - Product quality issue [None]
